FAERS Safety Report 9460496 (Version 2)
Quarter: 2013Q4

REPORT INFORMATION
  Report Type: Spontaneous
  Country: GR (occurrence: GR)
  Receive Date: 20130815
  Receipt Date: 20131226
  Transmission Date: 20140711
  Serious: Yes (Death, Hospitalization, Other)
  Sender: FDA-Public Use
  Company Number: GR-CELGENEUS-066-21880-13080239

PATIENT
  Sex: 0

DRUGS (7)
  1. REVLIMID [Suspect]
     Indication: PLASMA CELL MYELOMA
     Route: 048
  2. DEXAMETHASONE [Concomitant]
     Indication: PLASMA CELL MYELOMA
     Route: 065
  3. ASPIRINE [Concomitant]
     Indication: PROPHYLAXIS
     Route: 065
  4. LMWH [Concomitant]
     Indication: PROPHYLAXIS
     Route: 065
  5. ACENOCOUMAROL [Concomitant]
     Indication: PROPHYLAXIS
     Route: 065
  6. ERYTHROPOIESIS-STIMULATING AGENTS [Concomitant]
     Indication: PROPHYLAXIS
     Route: 065
  7. CLOPIDOGREL [Concomitant]
     Indication: PROPHYLAXIS
     Route: 065

REACTIONS (67)
  - Pneumonia [Fatal]
  - Embolism arterial [Unknown]
  - Haemorrhagic stroke [Unknown]
  - Deep vein thrombosis [Unknown]
  - Respiratory tract infection [Unknown]
  - Renal failure [Unknown]
  - Renal failure acute [Unknown]
  - Hypersensitivity [Unknown]
  - Atrial fibrillation [Unknown]
  - Angina pectoris [Unknown]
  - Pancytopenia [Unknown]
  - Pulmonary embolism [Unknown]
  - Thrombophlebitis [Unknown]
  - Thrombosis [Unknown]
  - Bone marrow failure [Unknown]
  - Haemodynamic instability [Unknown]
  - Drug intolerance [Unknown]
  - Agitation [Unknown]
  - Amnesia [Unknown]
  - Neuralgia [Unknown]
  - Enterocolitis [Unknown]
  - Vertigo [Unknown]
  - Hypocalcaemia [Unknown]
  - Insomnia [Unknown]
  - Bradycardia [Unknown]
  - Balance disorder [Unknown]
  - Colitis [Unknown]
  - Libido decreased [Unknown]
  - Plasmacytoma [Unknown]
  - Plasma cell myeloma [Unknown]
  - Hypotension [Unknown]
  - Neutropenia [Unknown]
  - Leukopenia [Unknown]
  - Thrombocytopenia [Unknown]
  - Anaemia [Unknown]
  - Fatigue [Unknown]
  - Malaise [Unknown]
  - Oedema peripheral [Unknown]
  - Pyrexia [Unknown]
  - Neuropathy peripheral [Unknown]
  - Hypoaesthesia [Unknown]
  - Neuropathy peripheral [Unknown]
  - Tremor [Unknown]
  - Headache [Unknown]
  - Dyspnoea [Unknown]
  - Infection [Unknown]
  - Lung infection [Unknown]
  - Tooth abscess [Unknown]
  - Urinary tract infection [Unknown]
  - Muscle spasms [Unknown]
  - Muscular weakness [Unknown]
  - Bone pain [Unknown]
  - Pain in extremity [Unknown]
  - Rash [Unknown]
  - Erythema [Unknown]
  - Rash [Unknown]
  - Pruritus [Unknown]
  - Pruritus [Unknown]
  - Diarrhoea [Unknown]
  - Constipation [Unknown]
  - Nausea [Unknown]
  - Vomiting [Unknown]
  - Decreased appetite [Unknown]
  - Weight decreased [Unknown]
  - Asthenia [Unknown]
  - Myalgia [Unknown]
  - Bronchitis [Unknown]
